FAERS Safety Report 20037598 (Version 3)
Quarter: 2022Q1

REPORT INFORMATION
  Report Type: Spontaneous
  Country: ZA (occurrence: ZA)
  Receive Date: 20211105
  Receipt Date: 20220103
  Transmission Date: 20220423
  Serious: Yes (Hospitalization, Other)
  Sender: FDA-Public Use
  Company Number: ZA-NOVOPROD-861500

PATIENT
  Age: 67 Year
  Sex: Female
  Weight: 96 kg

DRUGS (9)
  1. ESTRADIOL HEMIHYDRATE [Suspect]
     Active Substance: ESTRADIOL HEMIHYDRATE
     Indication: Hormone therapy
     Dosage: 1 MG
     Route: 048
     Dates: start: 2010
  2. SIMVASTATIN [Concomitant]
     Active Substance: SIMVASTATIN
     Indication: Blood cholesterol abnormal
     Dosage: 40 MG
     Route: 048
  3. ZOLPIDEM TARTRATE [Concomitant]
     Active Substance: ZOLPIDEM TARTRATE
     Indication: Sleep disorder
     Dosage: 10 MG
     Route: 048
  4. BISOPROLOL FUMARATE [Concomitant]
     Active Substance: BISOPROLOL FUMARATE
     Indication: Hypertension
     Dosage: 5 MG
     Route: 048
  5. NEXIPRAZ [ESOMEPRAZOLE] [Concomitant]
     Indication: Ulcer
     Dosage: 40 MG
     Route: 048
  6. TAMBOCOR [Concomitant]
     Active Substance: FLECAINIDE ACETATE
     Indication: Cardiac disorder
     Dosage: 100 MG
     Route: 048
  7. ECOTRIN [Concomitant]
     Active Substance: ASPIRIN
     Indication: Anticoagulant therapy
     Dosage: 81 MG
     Route: 048
  8. LEVOTHYROXINE [Concomitant]
     Active Substance: LEVOTHYROXINE
     Indication: Thyroid disorder
     Dosage: 100 AND 50 MCG
     Route: 048
  9. AMITRIPTYLINE [Concomitant]
     Active Substance: AMITRIPTYLINE
     Indication: Depression
     Dosage: 25 MG
     Route: 048

REACTIONS (2)
  - Rectal prolapse [Recovered/Resolved]
  - Bladder prolapse [Recovered/Resolved]

NARRATIVE: CASE EVENT DATE: 20210101
